FAERS Safety Report 13752586 (Version 1)
Quarter: 2017Q3

REPORT INFORMATION
  Report Type: Spontaneous
  Country: US (occurrence: US)
  Receive Date: 20170713
  Receipt Date: 20170713
  Transmission Date: 20171127
  Serious: Yes (Hospitalization)
  Sender: FDA-Public Use
  Company Number: None

PATIENT
  Age: 57 Year
  Sex: Male

DRUGS (7)
  1. SIMVSTATIN [Concomitant]
  2. ATENOL [Concomitant]
     Active Substance: ATENOLOL
  3. JUMALOG [Concomitant]
  4. SENSIPAR [Suspect]
     Active Substance: CINACALCET HYDROCHLORIDE
     Indication: END STAGE RENAL DISEASE
     Route: 048
     Dates: start: 20160630
  5. FUROSEMID [Concomitant]
     Active Substance: FUROSEMIDE
  6. LANTUS [Concomitant]
     Active Substance: INSULIN GLARGINE
  7. TUMS [Concomitant]
     Active Substance: CALCIUM CARBONATE

REACTIONS (6)
  - Head injury [None]
  - Troponin increased [None]
  - Syncope [None]
  - Presyncope [None]
  - Loss of consciousness [None]
  - Fall [None]

NARRATIVE: CASE EVENT DATE: 20170706
